FAERS Safety Report 4429590-X (Version None)
Quarter: 2004Q3

REPORT INFORMATION
  Report Type: 
  Country: None (occurrence: None)
  Receive Date: 20040816
  Receipt Date: 20040806
  Transmission Date: 20050211
  Serious: Yes (Hospitalization)
  Sender: FDA-Public Use
  Company Number: 2003191663IL

PATIENT
  Age: 46 Year
  Sex: Female

DRUGS (3)
  1. TRELSTAR DEPOT [Suspect]
     Dosage: SEE IMAGE
     Route: 030
     Dates: start: 20030910, end: 20030910
  2. TRELSTAR DEPOT [Suspect]
     Dosage: SEE IMAGE
     Route: 030
     Dates: start: 20031012, end: 20031012
  3. IRON [Concomitant]

REACTIONS (6)
  - ABDOMINAL PAIN [None]
  - DYSSTASIA [None]
  - HYPERSENSITIVITY [None]
  - INJECTION SITE CELLULITIS [None]
  - LEUKOCYTOCLASTIC VASCULITIS [None]
  - THERAPY NON-RESPONDER [None]
